FAERS Safety Report 10702446 (Version 1)
Quarter: 2015Q1

REPORT INFORMATION
  Report Type: Spontaneous
  Country: US (occurrence: US)
  Receive Date: 20150109
  Receipt Date: 20150109
  Transmission Date: 20150721
  Serious: No
  Sender: FDA-Public Use
  Company Number: US-CELGENEUS-USA-2014104213

PATIENT
  Sex: Female

DRUGS (1)
  1. OTEZLA [Suspect]
     Active Substance: APREMILAST
     Indication: PSORIATIC ARTHROPATHY
     Dosage: STARTE PACK
     Route: 048
     Dates: start: 20141004, end: 20141015

REACTIONS (3)
  - Headache [Unknown]
  - Vision blurred [Unknown]
  - Eye pain [Unknown]
